FAERS Safety Report 7672414-8 (Version None)
Quarter: 2011Q3

REPORT INFORMATION
  Report Type: 
  Country: None (occurrence: None)
  Receive Date: 20110809
  Receipt Date: 20110803
  Transmission Date: 20111222
  Serious: Yes (Hospitalization)
  Sender: FDA-Public Use
  Company Number: MY-MERCK-1105USA03480

PATIENT
  Age: 46 Year
  Sex: Female

DRUGS (4)
  1. LIPITOR [Concomitant]
     Indication: TYPE 2 DIABETES MELLITUS
     Route: 065
  2. GLUCOBAY [Concomitant]
     Indication: TYPE 2 DIABETES MELLITUS
     Route: 065
  3. JANUMET [Suspect]
     Indication: TYPE 2 DIABETES MELLITUS
     Route: 048
     Dates: start: 20110518, end: 20110101
  4. JANUMET [Suspect]
     Route: 048
     Dates: start: 20100101

REACTIONS (4)
  - INCORRECT DOSE ADMINISTERED [None]
  - VOMITING [None]
  - GASTRITIS [None]
  - EXPIRED DRUG ADMINISTERED [None]
